FAERS Safety Report 5166183-3 (Version None)
Quarter: 2006Q4

REPORT INFORMATION
  Report Type: 
  Country: None (occurrence: None)
  Receive Date: 20061129
  Receipt Date: 20061116
  Transmission Date: 20070319
  Serious: Yes (Other)
  Sender: FDA-Public Use
  Company Number: 2006142712

PATIENT
  Sex: Female
  Weight: 65.318 kg

DRUGS (4)
  1. LIPITOR [Suspect]
     Indication: BLOOD CHOLESTEROL INCREASED
     Dosage: 10 MG (10 MG, 1 IN 1 D), ORAL
     Route: 048
  2. TOPROL-XL [Concomitant]
  3. AVALIDE [Concomitant]
  4. OGEN [Concomitant]

REACTIONS (3)
  - DRY EYE [None]
  - EYELID DISORDER [None]
  - LACRIMATION INCREASED [None]
